FAERS Safety Report 24837876 (Version 1)
Quarter: 2025Q1

REPORT INFORMATION
  Report Type: Spontaneous
  Country: MA (occurrence: MA)
  Receive Date: 20250113
  Receipt Date: 20250113
  Transmission Date: 20250408
  Serious: Yes (Other)
  Sender: ALEXION PHARMACEUTICALS
  Company Number: MA-AstraZeneca-CH-00776385A

PATIENT

DRUGS (4)
  1. LYNPARZA [Suspect]
     Active Substance: OLAPARIB
     Indication: Ovarian cancer
     Dosage: 600 MILLIGRAM, QD
  2. LYNPARZA [Suspect]
     Active Substance: OLAPARIB
     Dosage: 600 MILLIGRAM, QD
     Route: 048
  3. LYNPARZA [Suspect]
     Active Substance: OLAPARIB
     Dosage: 600 MILLIGRAM, QD
  4. LYNPARZA [Suspect]
     Active Substance: OLAPARIB
     Dosage: 600 MILLIGRAM, QD
     Route: 048

REACTIONS (1)
  - Metastases to liver [Not Recovered/Not Resolved]
